FAERS Safety Report 20481428 (Version 1)
Quarter: 2022Q1

REPORT INFORMATION
  Report Type: Spontaneous
  Country: US (occurrence: None)
  Receive Date: 20220216
  Receipt Date: 20220216
  Transmission Date: 20220423
  Serious: Yes (Hospitalization)
  Sender: FDA-Public Use
  Company Number: None

PATIENT
  Age: 75 Year
  Sex: Female

DRUGS (1)
  1. RIBAVIRIN [Suspect]
     Active Substance: RIBAVIRIN
     Indication: Hepatitis C
     Dosage: 400 AM AND 600 MG PM BID ORAL? ?
     Route: 048
     Dates: start: 20220114, end: 20220131

REACTIONS (3)
  - Vomiting [None]
  - Abdominal pain [None]
  - Blood sodium decreased [None]

NARRATIVE: CASE EVENT DATE: 20220128
